FAERS Safety Report 7878945-X (Version None)
Quarter: 2011Q4

REPORT INFORMATION
  Report Type: 
  Country: None (occurrence: None)
  Receive Date: 20111025
  Receipt Date: 20110318
  Transmission Date: 20120403
  Serious: Yes (Other)
  Sender: FDA-Public Use
  Company Number: 2011-01348

PATIENT
  Age: 18 Year
  Sex: Female

DRUGS (3)
  1. TUBERSOL [Suspect]
     Indication: IMMUNISATION
     Dates: start: 20090901, end: 20090901
  2. TUBERSOL [Suspect]
     Indication: PROPHYLAXIS
     Dates: start: 20090901, end: 20090901
  3. ^OTHER MEDICATIONS^ [Concomitant]

REACTIONS (2)
  - GAIT DISTURBANCE [None]
  - AMNESIA [None]
